FAERS Safety Report 8586057-5 (Version None)
Quarter: 2012Q3

REPORT INFORMATION
  Report Type: 
  Country: None (occurrence: None)
  Receive Date: 20120810
  Receipt Date: 20120806
  Transmission Date: 20120928
  Serious: Yes (Other)
  Sender: FDA-Public Use
  Company Number: US-PFIZER INC-2012132651

PATIENT
  Age: 46 Year
  Sex: Male

DRUGS (2)
  1. LYRICA [Suspect]
     Indication: NEURALGIA
     Dosage: 75 MG, 2X/DAY
     Route: 048
     Dates: start: 20120211, end: 20120508
  2. MOTRIN [Concomitant]
     Indication: INFLAMMATION
     Dosage: 800 MG, 3X/DAY
     Dates: start: 20110501, end: 20120601

REACTIONS (3)
  - OPTIC NEURITIS [None]
  - VISUAL FIELD DEFECT [None]
  - AMNESIA [None]
